FAERS Safety Report 22293464 (Version 1)
Quarter: 2023Q2

REPORT INFORMATION
  Report Type: Spontaneous
  Country: DE (occurrence: DE)
  Receive Date: 20230508
  Receipt Date: 20230508
  Transmission Date: 20230721
  Serious: Yes (Hospitalization)
  Sender: FDA-Public Use
  Company Number: DE-ROCHE-3297406

PATIENT
  Age: 60 Year
  Sex: Male
  Weight: 80 kg

DRUGS (18)
  1. CAPECITABINE [Suspect]
     Active Substance: CAPECITABINE
     Indication: Product used for unknown indication
     Dosage: BID?DAILY DOSE: 2000 MILLIGRAM
     Route: 048
     Dates: start: 20220622
  2. CAPECITABINE [Suspect]
     Active Substance: CAPECITABINE
     Indication: Product used for unknown indication
     Dosage: BID, ON 05/JAN/2023 DATE OF MOST RECENT DOSE OF CAPECITABINE PRIOR TO AE/SAE
     Route: 048
     Dates: start: 20230105
  3. BEVACIZUMAB [Suspect]
     Active Substance: BEVACIZUMAB
     Indication: Product used for unknown indication
     Route: 042
     Dates: start: 20220622
  4. BEVACIZUMAB [Suspect]
     Active Substance: BEVACIZUMAB
     Indication: Product used for unknown indication
     Dosage: ON 05/JAN/2023 DATE OF MOST RECENT DOSE OF BEVACIZUMAB PRIOR TO AE/SAE
     Route: 042
     Dates: start: 20230105
  5. AFLIBERCEPT [Suspect]
     Active Substance: AFLIBERCEPT
     Indication: Neoplasm malignant
     Route: 042
     Dates: start: 20230301
  6. AFLIBERCEPT [Suspect]
     Active Substance: AFLIBERCEPT
     Indication: Neoplasm malignant
     Dosage: MOST RECENT DOSE
     Route: 042
     Dates: end: 20230418
  7. IRINOTECAN [Suspect]
     Active Substance: IRINOTECAN
     Indication: Neoplasm malignant
     Route: 042
     Dates: start: 20230301
  8. IRINOTECAN [Suspect]
     Active Substance: IRINOTECAN
     Indication: Neoplasm malignant
     Dosage: MOST RECENT DOSE
     Route: 042
     Dates: end: 20230418
  9. LEUCOVORIN CALCIUM [Suspect]
     Active Substance: LEUCOVORIN CALCIUM
     Indication: Neoplasm malignant
     Route: 042
     Dates: start: 20230301
  10. LEUCOVORIN CALCIUM [Suspect]
     Active Substance: LEUCOVORIN CALCIUM
     Indication: Neoplasm malignant
     Dosage: MOST RECENT DOSE
     Route: 042
     Dates: end: 20230418
  11. FLUOROURACIL [Suspect]
     Active Substance: FLUOROURACIL
     Indication: Neoplasm malignant
     Dosage: MOST RECENT DOSE
     Route: 042
     Dates: start: 20230301
  12. FLUOROURACIL [Suspect]
     Active Substance: FLUOROURACIL
     Indication: Neoplasm malignant
     Route: 042
     Dates: end: 20230418
  13. Vitamin B6;Vitamin B12 [Concomitant]
     Dates: start: 20211223
  14. CHOLECALCIFEROL [Concomitant]
     Active Substance: CHOLECALCIFEROL
     Dosage: 1 TIMES IN 1 WEEK?20.000 IE
     Dates: start: 20211223
  15. SELENIUM [Concomitant]
     Active Substance: SELENIUM
     Dates: start: 20220316
  16. METOCLOPRAMIDE [Concomitant]
     Active Substance: METOCLOPRAMIDE
     Dosage: 1-0-1?10 MG 2 TIMES IN 1 DAY
     Dates: start: 20220316
  17. LOPERAMIDE [Concomitant]
     Active Substance: LOPERAMIDE
     Dates: start: 20220615
  18. ONDANSETRON [Concomitant]
     Active Substance: ONDANSETRON
     Dates: start: 20220316

REACTIONS (2)
  - Cholecystitis [Recovered/Resolved]
  - Cholecystitis [Recovering/Resolving]

NARRATIVE: CASE EVENT DATE: 20230110
